FAERS Safety Report 17906885 (Version 2)
Quarter: 2020Q2

REPORT INFORMATION
  Report Type: Spontaneous
  Country: US (occurrence: US)
  Receive Date: 20200617
  Receipt Date: 20200618
  Transmission Date: 20200714
  Serious: Yes (Other)
  Sender: FDA-Public Use
  Company Number: US-PFIZER INC-2020233036

PATIENT
  Age: 84 Year
  Sex: Female

DRUGS (2)
  1. CARBOCAINE [Suspect]
     Active Substance: MEPIVACAINE HYDROCHLORIDE
     Indication: ENDODONTIC PROCEDURE
     Dosage: 4 VIALS OF 1.8CC OF 3%
  2. CARBOCAINE [Suspect]
     Active Substance: MEPIVACAINE HYDROCHLORIDE
     Dosage: 120MG, UNK

REACTIONS (5)
  - Asthenia [Unknown]
  - Blood pressure increased [Unknown]
  - Off label use [Unknown]
  - Hypotension [Unknown]
  - Product use in unapproved indication [Unknown]
